FAERS Safety Report 6968248-X (Version None)
Quarter: 2010Q3

REPORT INFORMATION
  Report Type: 
  Country: None (occurrence: None)
  Receive Date: 20100907
  Receipt Date: 20100902
  Transmission Date: 20110219
  Serious: Yes (Other)
  Sender: FDA-Public Use
  Company Number: GR-ROCHE-709063

PATIENT
  Age: 48 Year
  Sex: Female

DRUGS (1)
  1. HERCEPTIN [Suspect]
     Route: 065
     Dates: start: 19990101

REACTIONS (1)
  - LEUKAEMIA [None]
